FAERS Safety Report 5264835-8 (Version None)
Quarter: 2007Q1

REPORT INFORMATION
  Report Type: 
  Country: None (occurrence: None)
  Receive Date: 20070314
  Receipt Date: 20070302
  Transmission Date: 20070707
  Serious: Yes (Hospitalization)
  Sender: FDA-Public Use
  Company Number: JP-GLAXOSMITHKLINE-B0390924A

PATIENT
  Age: 55 Day
  Sex: Female
  Weight: 0.7 kg

DRUGS (12)
  1. FLUTICASONE PROPIONATE [Suspect]
     Indication: BRONCHOPULMONARY DYSPLASIA
     Route: 055
     Dates: start: 20050609, end: 20050718
  2. LASIX [Concomitant]
     Indication: LUNG DISORDER
     Dosage: 1MG PER DAY
     Route: 048
     Dates: start: 20050704
  3. ALDACTONE [Concomitant]
     Indication: LUNG DISORDER
     Dosage: 5MG PER DAY
     Route: 048
     Dates: start: 20050704
  4. INCREMIN [Concomitant]
     Dosage: 6ML PER DAY
     Route: 048
     Dates: start: 20050707
  5. SODIUM CHLORIDE [Concomitant]
     Dosage: 1.2ML PER DAY
     Route: 048
     Dates: start: 20050704
  6. ESPO [Concomitant]
     Dosage: .2ML PER DAY
     Route: 058
     Dates: start: 20050614
  7. DOPAMINE HCL [Concomitant]
     Route: 065
  8. DOBUTAMINE [Concomitant]
     Route: 065
  9. INDOMETHACIN [Concomitant]
     Route: 065
  10. AMPICILLIN [Concomitant]
     Route: 065
  11. CEFOTAXIME [Concomitant]
     Route: 065
  12. AMINOPHYLLINE [Concomitant]
     Route: 065

REACTIONS (9)
  - ADRENAL CORTICAL INSUFFICIENCY [None]
  - ADRENAL SUPPRESSION [None]
  - ADRENOCORTICAL INSUFFICIENCY ACUTE [None]
  - BLOOD CORTICOTROPHIN ABNORMAL [None]
  - GENERALISED OEDEMA [None]
  - HYPERKALAEMIA [None]
  - HYPONATRAEMIA [None]
  - HYPOTENSION [None]
  - OLIGURIA [None]
